FAERS Safety Report 6163488-4 (Version None)
Quarter: 2009Q2

REPORT INFORMATION
  Report Type: 
  Country: None (occurrence: None)
  Receive Date: 20090422
  Receipt Date: 20020123
  Transmission Date: 20091009
  Serious: No
  Sender: FDA-Public Use
  Company Number: US-SOLVAY-00202000219

PATIENT
  Sex: Female

DRUGS (2)
  1. ANDROGEL [Suspect]
     Indication: ACCIDENTAL EXPOSURE
     Dosage: DAILY DOSE: UNK.
     Route: 062
  2. CLARITIN [Concomitant]
     Indication: SEASONAL ALLERGY
     Dosage: DAILY DOSE: UNK.
     Route: 048

REACTIONS (1)
  - SKIN IRRITATION [None]
